FAERS Safety Report 8431199-8 (Version None)
Quarter: 2012Q2

REPORT INFORMATION
  Report Type: 
  Country: None (occurrence: None)
  Receive Date: 20120612
  Receipt Date: 20120608
  Transmission Date: 20120825
  Serious: Yes (Other)
  Sender: FDA-Public Use
  Company Number: PHHY2012IT049401

PATIENT
  Age: 75 Year
  Sex: Male

DRUGS (3)
  1. CISPLATIN [Suspect]
     Indication: PENIS CARCINOMA
     Dosage: 100 MG/M2, UNK
  2. FILGRASTIM [Concomitant]
     Indication: PENIS CARCINOMA
  3. FLUOROURACIL [Suspect]
     Indication: PENIS CARCINOMA
     Dosage: 1000 MG/M2, UNK

REACTIONS (6)
  - INGUINAL MASS [None]
  - PAIN [None]
  - PENIS CARCINOMA RECURRENT [None]
  - HYPERCREATININAEMIA [None]
  - NEOPLASM MALIGNANT [None]
  - RENAL INJURY [None]
